FAERS Safety Report 14461685 (Version 3)
Quarter: 2018Q1

REPORT INFORMATION
  Report Type: Spontaneous
  Country: UY (occurrence: UY)
  Receive Date: 20180130
  Receipt Date: 20180307
  Transmission Date: 20180509
  Serious: Yes (Hospitalization, Other)
  Sender: FDA-Public Use
  Company Number: UY-ABBVIE-18K-168-2240721-00

PATIENT
  Age: 59 Year
  Sex: Female

DRUGS (1)
  1. HUMIRA [Suspect]
     Active Substance: ADALIMUMAB
     Indication: CROHN^S DISEASE
     Route: 058
     Dates: start: 201607

REACTIONS (5)
  - Leukaemia [Unknown]
  - Lymphoma [Unknown]
  - Tuberculosis [Unknown]
  - Leukocytosis [Unknown]
  - Lymphadenopathy [Unknown]
